FAERS Safety Report 9746106 (Version 2)
Quarter: 2013Q4

REPORT INFORMATION
  Report Type: Spontaneous
  Country: US (occurrence: US)
  Receive Date: 20131211
  Receipt Date: 20131211
  Transmission Date: 20140711
  Serious: Yes (Other)
  Sender: FDA-Public Use
  Company Number: US-BMSGILMSD-2009-0023764

PATIENT
  Age: 36 Year
  Sex: Female
  Weight: 49.89 kg

DRUGS (1)
  1. ATRIPLA [Suspect]
     Indication: HIV INFECTION
     Route: 048
     Dates: start: 20081110, end: 20090625

REACTIONS (2)
  - Suicidal ideation [Recovered/Resolved]
  - Fatigue [Recovered/Resolved]
